FAERS Safety Report 12315674 (Version 1)
Quarter: 2016Q2

REPORT INFORMATION
  Report Type: Spontaneous
  Country: AU (occurrence: AU)
  Receive Date: 20160428
  Receipt Date: 20160428
  Transmission Date: 20160815
  Serious: Yes (Hospitalization)
  Sender: FDA-Public Use
  Company Number: AU-ARBOR PHARMACEUTICALS, LLC-AU-2016ARB000303

PATIENT
  Age: 45 Year
  Sex: Male

DRUGS (1)
  1. AMPHETAMINE SULFATE [Suspect]
     Active Substance: AMPHETAMINE SULFATE
     Indication: PRODUCT USED FOR UNKNOWN INDICATION
     Dosage: UNK

REACTIONS (8)
  - Hypertension [Unknown]
  - Arteriospasm coronary [Unknown]
  - Coronary artery dissection [Unknown]
  - Troponin increased [Unknown]
  - Coronary artery occlusion [Unknown]
  - Chest pain [Unknown]
  - Blood creatine phosphokinase increased [Unknown]
  - Electrocardiogram T wave inversion [Unknown]
